FAERS Safety Report 18213731 (Version 1)
Quarter: 2020Q3

REPORT INFORMATION
  Report Type: Spontaneous
  Country: US (occurrence: US)
  Receive Date: 20200831
  Receipt Date: 20200831
  Transmission Date: 20201103
  Serious: Yes (Other)
  Sender: FDA-Public Use
  Company Number: None

PATIENT
  Age: 67 Year
  Sex: Male
  Weight: 86 kg

DRUGS (6)
  1. AZITHROMYCIN 500MG IV [Concomitant]
     Active Substance: AZITHROMYCIN ANHYDROUS
     Dates: start: 20200827, end: 20200828
  2. LISINOPRIL 20MG PO [Concomitant]
     Dates: start: 20200828
  3. REMDESIVIR (EUA SUPPLY) [Suspect]
     Active Substance: REMDESIVIR
     Indication: COVID-19 PNEUMONIA
     Dosage: ?          OTHER FREQUENCY:ONCE;?
     Route: 042
     Dates: start: 20200828, end: 20200828
  4. DEXAMETHASON 6MG IV [Concomitant]
     Dates: start: 20200828
  5. ATORVASTATIN 10MG PO [Concomitant]
     Dates: start: 20200828
  6. CEFTRIAXONE 2G IV [Concomitant]
     Dates: start: 20200827, end: 20200828

REACTIONS (1)
  - Alanine aminotransferase increased [None]

NARRATIVE: CASE EVENT DATE: 20200829
